FAERS Safety Report 15413769 (Version 1)
Quarter: 2018Q3

REPORT INFORMATION
  Report Type: Spontaneous
  Country: US (occurrence: US)
  Receive Date: 20180921
  Receipt Date: 20180921
  Transmission Date: 20181010
  Serious: Yes (Other)
  Sender: FDA-Public Use
  Company Number: US-ELI_LILLY_AND_COMPANY-US201809004628

PATIENT
  Age: 75 Year
  Sex: Female

DRUGS (3)
  1. HUMULIN N [Suspect]
     Active Substance: INSULIN HUMAN
     Indication: GESTATIONAL DIABETES
     Dosage: 70 U, BID
     Route: 065
  2. DEXTROSE IN WATER [Suspect]
     Active Substance: DEXTROSE\WATER
     Indication: PRODUCT USED FOR UNKNOWN INDICATION
     Dosage: UNK, UNKNOWN
     Route: 065
  3. HUMULIN R [Suspect]
     Active Substance: INSULIN HUMAN
     Indication: GESTATIONAL DIABETES
     Dosage: UNK, PRN
     Route: 065

REACTIONS (7)
  - Emotional disorder [Unknown]
  - Renal disorder [Unknown]
  - Liver disorder [Unknown]
  - Maternal exposure during pregnancy [Recovered/Resolved]
  - Colon cancer [Recovering/Resolving]
  - Coma [Recovered/Resolved]
  - Blood glucose increased [Unknown]
